FAERS Safety Report 7006606-8 (Version None)
Quarter: 2010Q3

REPORT INFORMATION
  Report Type: 
  Country: None (occurrence: None)
  Receive Date: 20100921
  Receipt Date: 20100921
  Transmission Date: 20110219
  Serious: No
  Sender: FDA-Public Use
  Company Number: None

PATIENT
  Sex: Male
  Weight: 75.6 kg

DRUGS (6)
  1. PEG-L- ASPARAGINASE (K -H) [Suspect]
     Dosage: 9575 MG
  2. VINCRISTINE SULFATE [Suspect]
     Dosage: 4 MG
  3. CYCLOPHOSPHAMIDE [Suspect]
     Dosage: 3860 MG
  4. CYTARABINE [Suspect]
     Dosage: 2306 MG
  5. MERCAPTOPURINE [Suspect]
     Dosage: 3300 MG
  6. METHOTREXATE [Suspect]
     Dosage: 30 MG

REACTIONS (2)
  - BLOOD CHOLESTEROL ABNORMAL [None]
  - BLOOD TRIGLYCERIDES ABNORMAL [None]
